FAERS Safety Report 12240433 (Version 1)
Quarter: 2016Q2

REPORT INFORMATION
  Report Type: Report from Study
  Country: US (occurrence: US)
  Receive Date: 20160405
  Receipt Date: 20160405
  Transmission Date: 20160815
  Serious: Yes (Hospitalization)
  Sender: FDA-Public Use
  Company Number: US-BIOGEN-2014BI002314

PATIENT
  Age: 45 Year
  Sex: Female

DRUGS (4)
  1. TECFIDERA [Suspect]
     Active Substance: DIMETHYL FUMARATE
     Indication: MULTIPLE SCLEROSIS
     Route: 048
     Dates: start: 20131111, end: 20131125
  2. AUBAGIO [Concomitant]
     Active Substance: TERIFLUNOMIDE
     Indication: PRODUCT USED FOR UNKNOWN INDICATION
     Route: 065
  3. TECFIDERA [Suspect]
     Active Substance: DIMETHYL FUMARATE
     Route: 048
     Dates: start: 20140929, end: 2014
  4. TECFIDERA [Suspect]
     Active Substance: DIMETHYL FUMARATE
     Route: 048
     Dates: start: 20131111

REACTIONS (14)
  - Rash erythematous [Recovered/Resolved]
  - Memory impairment [Not Recovered/Not Resolved]
  - Pyrexia [Recovered/Resolved]
  - Migraine [Recovered/Resolved]
  - Cognitive disorder [Recovered/Resolved]
  - Malaise [Recovered/Resolved]
  - Urinary tract infection [Unknown]
  - Fall [Unknown]
  - Lip swelling [Recovered/Resolved]
  - Diarrhoea [Recovered/Resolved]
  - Cough [Recovered/Resolved]
  - Erythema multiforme [Recovered/Resolved]
  - Dehydration [Recovered/Resolved]
  - Hypersensitivity [Recovered/Resolved]

NARRATIVE: CASE EVENT DATE: 20131111
